FAERS Safety Report 16798485 (Version 1)
Quarter: 2019Q3

REPORT INFORMATION
  Report Type: Spontaneous
  Country: US (occurrence: US)
  Receive Date: 20190912
  Receipt Date: 20190912
  Transmission Date: 20191005
  Serious: Yes (Hospitalization, Other)
  Sender: FDA-Public Use
  Company Number: US-TORRENT-00009186

PATIENT
  Age: 70 Year
  Sex: Male

DRUGS (2)
  1. CARBAMAZEPINE. [Concomitant]
     Active Substance: CARBAMAZEPINE
     Indication: SEIZURE
     Dosage: SEIZURE DISORDER THAT HAS BEEN MANAGED WITH CARBAMAZEPINE FOR MANY YEARS
  2. ZOLPIDEM [Suspect]
     Active Substance: ZOLPIDEM TARTRATE
     Indication: PAIN
     Dosage: TOTAL
     Route: 048

REACTIONS (3)
  - Inappropriate schedule of product administration [Unknown]
  - Overdose [Recovering/Resolving]
  - Inappropriate antidiuretic hormone secretion [Recovering/Resolving]
